FAERS Safety Report 18429189 (Version 1)
Quarter: 2020Q4

REPORT INFORMATION
  Report Type: Spontaneous
  Country: US (occurrence: US)
  Receive Date: 20201026
  Receipt Date: 20201026
  Transmission Date: 20210114
  Serious: No
  Sender: FDA-Public Use
  Company Number: US-PFIZER INC-2020411594

PATIENT

DRUGS (1)
  1. CELEBREX [Suspect]
     Active Substance: CELECOXIB
     Indication: ARTHRITIS
     Dosage: 200 MG
     Dates: start: 20201004

REACTIONS (5)
  - Dry mouth [Unknown]
  - Swollen tongue [Unknown]
  - Abdominal pain upper [Unknown]
  - Insomnia [Unknown]
  - Swelling face [Unknown]
